FAERS Safety Report 9809449 (Version 1)
Quarter: 2014Q1

REPORT INFORMATION
  Report Type: Spontaneous
  Country: FR (occurrence: FR)
  Receive Date: 20140110
  Receipt Date: 20140110
  Transmission Date: 20141002
  Serious: Yes (Hospitalization)
  Sender: FDA-Public Use
  Company Number: FR-ASTRAZENECA-2014SE01078

PATIENT
  Age: 822 Month
  Sex: Female

DRUGS (4)
  1. ARIMIDEX [Suspect]
     Indication: BREAST CANCER
     Route: 048
     Dates: start: 201107
  2. DOXORUBICINE [Suspect]
     Indication: BREAST CANCER
     Dosage: 83 MG PER CYCLE
     Route: 042
     Dates: start: 20110110, end: 20110427
  3. CYCLOPHOSPHAMIDE [Suspect]
     Indication: BREAST CANCER
     Dosage: 835 MG PER CYCLE
     Route: 042
     Dates: start: 20110110, end: 20110427
  4. DOCETAXEL [Suspect]
     Indication: BREAST CANCER
     Dosage: 125 MG PER CYCLE
     Route: 042
     Dates: start: 20110110, end: 20110427

REACTIONS (1)
  - Acute myeloid leukaemia [Not Recovered/Not Resolved]
